FAERS Safety Report 20879875 (Version 1)
Quarter: 2022Q2

REPORT INFORMATION
  Report Type: Spontaneous
  Country: CA (occurrence: CA)
  Receive Date: 20220526
  Receipt Date: 20220526
  Transmission Date: 20220721
  Serious: Yes (Other)
  Sender: FDA-Public Use
  Company Number: CA-BAUSCH-BL-2022-007346

PATIENT
  Age: 65 Year
  Sex: Male
  Weight: 77.9 kg

DRUGS (7)
  1. JUBLIA [Suspect]
     Active Substance: EFINACONAZOLE
     Indication: Onychomycosis
     Dosage: 1 APPLICATION DAILY
     Route: 061
     Dates: start: 202110, end: 202202
  2. JUBLIA [Suspect]
     Active Substance: EFINACONAZOLE
     Dosage: SECOND BOTTLE, 1 APPLICATION DAILY
     Route: 061
     Dates: start: 202202, end: 2022
  3. VITAMIN D [Concomitant]
     Active Substance: VITAMIN D NOS
     Indication: Product used for unknown indication
     Route: 048
  4. CENTRUM FOR MEN 50+ [Concomitant]
     Indication: Product used for unknown indication
     Route: 048
  5. FUROSEMIDE [Concomitant]
     Active Substance: FUROSEMIDE
     Indication: Product used for unknown indication
     Route: 065
  6. EFFEXOR [Concomitant]
     Active Substance: VENLAFAXINE HYDROCHLORIDE
     Indication: Product used for unknown indication
     Route: 065
  7. HYDROXYZINE [Concomitant]
     Active Substance: HYDROXYZINE HYDROCHLORIDE
     Indication: Product used for unknown indication
     Route: 065

REACTIONS (12)
  - Application site haemorrhage [Recovering/Resolving]
  - Discharge [Recovering/Resolving]
  - Skin lesion [Recovering/Resolving]
  - Rash pruritic [Recovering/Resolving]
  - Onychoclasis [Recovering/Resolving]
  - Skin odour abnormal [Recovering/Resolving]
  - Anxiety [Recovering/Resolving]
  - Skin laceration [Recovering/Resolving]
  - Ingrowing nail [Recovering/Resolving]
  - Skin exfoliation [Recovering/Resolving]
  - Pain [Recovering/Resolving]
  - Patient dissatisfaction with treatment [Unknown]

NARRATIVE: CASE EVENT DATE: 20220301
